FAERS Safety Report 8407056-X (Version None)
Quarter: 2012Q2

REPORT INFORMATION
  Report Type: 
  Country: None (occurrence: None)
  Receive Date: 20120604
  Receipt Date: 20120529
  Transmission Date: 20120825
  Serious: Yes (Hospitalization)
  Sender: FDA-Public Use
  Company Number: PHHY2012BR047062

PATIENT
  Sex: Female

DRUGS (4)
  1. METFORMIN HCL [Concomitant]
  2. LERCANIDIPINE [Concomitant]
  3. AMARYL [Concomitant]
  4. RASILEZ [Suspect]
     Dosage: 300 MG, UNK

REACTIONS (2)
  - DIABETES MELLITUS INADEQUATE CONTROL [None]
  - MALAISE [None]
